FAERS Safety Report 5476389-1 (Version None)
Quarter: 2007Q4

REPORT INFORMATION
  Report Type: 
  Country: None (occurrence: None)
  Receive Date: 20071003
  Receipt Date: 20070924
  Transmission Date: 20080405
  Serious: Yes (Other)
  Sender: FDA-Public Use
  Company Number: US-PFIZER INC-2007079765

PATIENT
  Sex: Female
  Weight: 68.181 kg

DRUGS (4)
  1. LIPITOR [Suspect]
     Indication: BLOOD CHOLESTEROL INCREASED
     Dates: start: 20061101, end: 20070701
  2. NITROFURANTOIN [Concomitant]
  3. ALPRAZOLAM [Concomitant]
  4. LITHIUM CARBONATE [Concomitant]

REACTIONS (4)
  - ARTHRALGIA [None]
  - MALAISE [None]
  - MYALGIA [None]
  - WEIGHT DECREASED [None]
